FAERS Safety Report 9556876 (Version 2)
Quarter: 2013Q3

REPORT INFORMATION
  Report Type: Report from Study
  Country: GR (occurrence: GR)
  Receive Date: 20130926
  Receipt Date: 20130926
  Transmission Date: 20140515
  Serious: Yes (Death, Hospitalization)
  Sender: FDA-Public Use
  Company Number: GR-ABBVIE-13P-066-1078286-00

PATIENT
  Age: 90 Year
  Sex: Male
  Weight: 47 kg

DRUGS (10)
  1. ZEMPLAR [Suspect]
     Indication: RENAL FAILURE CHRONIC
     Dosage: 3.75 MCG / WEEK
     Route: 042
     Dates: start: 20120428
  2. LOSEC [Concomitant]
     Indication: PROPHYLAXIS
     Route: 048
     Dates: start: 20120101, end: 20121211
  3. LOSEC [Concomitant]
     Indication: GASTRIC DISORDER
  4. SALOSPIR [Concomitant]
     Indication: CORONARY ARTERY DISEASE
     Route: 048
  5. IMDUR [Concomitant]
     Indication: CORONARY ARTERY DISEASE
     Route: 048
  6. DIGOXIN [Concomitant]
     Indication: ATRIAL FIBRILLATION
     Dosage: 0.5 ONCE DAILY THREE TIMES PER WEEK
  7. DILATREND [Concomitant]
     Indication: ATRIAL FIBRILLATION
     Route: 048
     Dates: start: 20120101, end: 20121211
  8. PLAVIX [Concomitant]
     Indication: ATRIAL FIBRILLATION
     Route: 048
     Dates: start: 20120101, end: 20121211
  9. VANCOMYCIN [Concomitant]
     Indication: PRODUCT USED FOR UNKNOWN INDICATION
     Dates: start: 20121205, end: 20121205
  10. DIGITALIN [Concomitant]
     Indication: PRODUCT USED FOR UNKNOWN INDICATION
     Dates: start: 20120101, end: 20121211

REACTIONS (2)
  - Ischaemic stroke [Fatal]
  - Cardio-respiratory arrest [Fatal]
